FAERS Safety Report 4942740-1 (Version None)
Quarter: 2006Q1

REPORT INFORMATION
  Report Type: 
  Country: None (occurrence: None)
  Receive Date: 20060314
  Receipt Date: 20060306
  Transmission Date: 20060701
  Serious: Yes (Death)
  Sender: FDA-Public Use
  Company Number: PHEH2006US02961

PATIENT
  Age: 20 Year
  Sex: Male

DRUGS (8)
  1. CLOZARIL [Suspect]
     Indication: AGGRESSION
     Dosage: 300 MG, BID
     Route: 048
     Dates: start: 20020101
  2. VISTARIL [Concomitant]
  3. KLONOPIN [Concomitant]
  4. DEPAKOTE [Concomitant]
  5. PREVACID [Concomitant]
     Indication: GASTROOESOPHAGEAL REFLUX DISEASE
  6. ZYPREXA [Concomitant]
     Indication: AGGRESSION
     Dates: end: 20030101
  7. TRILEPTAL [Concomitant]
     Indication: AGGRESSION
  8. COGENTIN [Concomitant]

REACTIONS (1)
  - ASPIRATION [None]
